FAERS Safety Report 25786527 (Version 1)
Quarter: 2025Q3

REPORT INFORMATION
  Report Type: Spontaneous
  Country: US (occurrence: None)
  Receive Date: 20250909
  Receipt Date: 20250909
  Transmission Date: 20251021
  Serious: Yes (Other)
  Sender: FDA-CTU
  Company Number: None

PATIENT
  Age: 20 Year
  Sex: Female
  Weight: 43.65 kg

DRUGS (5)
  1. REGLAN [Suspect]
     Active Substance: METOCLOPRAMIDE HYDROCHLORIDE
     Indication: Vomiting
     Dates: start: 20250905, end: 20250905
  2. PROZAC [Concomitant]
     Active Substance: FLUOXETINE HYDROCHLORIDE
  3. METHYLPHENIDATE [Concomitant]
     Active Substance: METHYLPHENIDATE
  4. LACOSAMIDE [Concomitant]
     Active Substance: LACOSAMIDE
  5. GUANFACINE [Concomitant]
     Active Substance: GUANFACINE

REACTIONS (5)
  - Tremor [None]
  - Feeling abnormal [None]
  - Aphasia [None]
  - Staring [None]
  - Movement disorder [None]

NARRATIVE: CASE EVENT DATE: 20250905
